FAERS Safety Report 26011861 (Version 1)
Quarter: 2025Q4

REPORT INFORMATION
  Report Type: Spontaneous
  Country: US (occurrence: US)
  Receive Date: 20251107
  Receipt Date: 20251107
  Transmission Date: 20260118
  Serious: No
  Sender: Jubilant Radiopharma
  Company Number: US-JUBILANT RADIOPHARMA-2025US000032

PATIENT

DRUGS (1)
  1. DRAXIMAGE DTPA [Suspect]
     Active Substance: TECHNETIUM TC-99M PENTETATE
     Indication: Ventilation/perfusion scan
     Dosage: 40
     Dates: start: 20251009, end: 20251009

REACTIONS (1)
  - Product ineffective [Recovered/Resolved]

NARRATIVE: CASE EVENT DATE: 20251009
